FAERS Safety Report 5649254-4 (Version None)
Quarter: 2008Q1

REPORT INFORMATION
  Report Type: 
  Country: None (occurrence: None)
  Receive Date: 20080131
  Receipt Date: 20071128
  Transmission Date: 20080703
  Serious: No
  Sender: FDA-Public Use
  Company Number: US200711006362

PATIENT
  Age: 44 Year
  Sex: Female
  Weight: 119.3 kg

DRUGS (7)
  1. BYETTA [Suspect]
     Indication: TYPE 2 DIABETES MELLITUS
     Dosage: 5, 10 UG, 2/D, SUBCUTANEOUS
     Route: 058
     Dates: start: 20060101, end: 20070601
  2. BYETTA [Suspect]
     Indication: TYPE 2 DIABETES MELLITUS
     Dosage: 5, 10 UG, 2/D, SUBCUTANEOUS
     Route: 058
     Dates: start: 20070601
  3. LANTUS [Concomitant]
  4. SYNTHROID [Concomitant]
  5. BUMEX [Concomitant]
  6. LISINOPRIL [Concomitant]
  7. METFORMIN HCL (METFORMIN HYDROCHLORIDE) [Concomitant]

REACTIONS (7)
  - BLOOD GLUCOSE INCREASED [None]
  - CHILLS [None]
  - COLD SWEAT [None]
  - FEELING HOT [None]
  - FEELING JITTERY [None]
  - NAUSEA [None]
  - WEIGHT DECREASED [None]
